FAERS Safety Report 11951648 (Version 1)
Quarter: 2016Q1

REPORT INFORMATION
  Report Type: Spontaneous
  Country: GR (occurrence: GR)
  Receive Date: 20160125
  Receipt Date: 20160125
  Transmission Date: 20160526
  Serious: Yes (Death)
  Sender: FDA-Public Use
  Company Number: GR-BAYER-2016-008130

PATIENT
  Age: 61 Year
  Sex: Male
  Weight: 74 kg

DRUGS (1)
  1. STIVARGA [Suspect]
     Active Substance: REGORAFENIB
     Indication: COLORECTAL CANCER STAGE II
     Dosage: 40 MG, QID
     Route: 048
     Dates: start: 20151103, end: 20151124

REACTIONS (7)
  - Blood bilirubin increased [Unknown]
  - Mucous membrane disorder [Fatal]
  - Nail disorder [Fatal]
  - Coma [Fatal]
  - Skin exfoliation [Fatal]
  - Skin lesion [Fatal]
  - Aphonia [Unknown]

NARRATIVE: CASE EVENT DATE: 20151104
